FAERS Safety Report 7805697-1 (Version None)
Quarter: 2011Q4

REPORT INFORMATION
  Report Type: 
  Country: None (occurrence: None)
  Receive Date: 20111011
  Receipt Date: 20111003
  Transmission Date: 20120403
  Serious: Yes (Hospitalization)
  Sender: FDA-Public Use
  Company Number: US-BIOGENIDEC-2011BI035365

PATIENT
  Age: 48 Year
  Sex: Male

DRUGS (8)
  1. INSULIN [Concomitant]
     Indication: DIABETES MELLITUS
     Dates: start: 20110901, end: 20110901
  2. METFORMIN HYDROCHLORIDE [Concomitant]
     Indication: DIABETES MELLITUS
     Dates: start: 20110901
  3. AVONEX [Suspect]
     Route: 030
     Dates: start: 20110801
  4. AVONEX [Suspect]
     Indication: MULTIPLE SCLEROSIS
     Route: 030
     Dates: start: 20110801
  5. JANUVIA [Concomitant]
     Indication: DIABETES MELLITUS
     Dates: end: 20110901
  6. LISINOPRIL [Concomitant]
     Indication: HYPERTENSION
     Dates: end: 20110915
  7. AMLODIPINE [Concomitant]
     Indication: HYPERTENSION
     Dates: end: 20110915
  8. METOPROLOL TARTRATE [Concomitant]
     Indication: HYPERTENSION

REACTIONS (6)
  - CENTRAL NERVOUS SYSTEM LESION [None]
  - PROCEDURAL PAIN [None]
  - MUSCLE SPASMS [None]
  - MYALGIA [None]
  - POOR PERIPHERAL CIRCULATION [None]
  - INFECTION [None]
